FAERS Safety Report 7198892-9 (Version None)
Quarter: 2010Q4

REPORT INFORMATION
  Report Type: 
  Country: None (occurrence: None)
  Receive Date: 20101227
  Receipt Date: 20101213
  Transmission Date: 20110411
  Serious: Yes (Other)
  Sender: FDA-Public Use
  Company Number: ES-SANOFI-AVENTIS-2010SA075141

PATIENT
  Age: 40 Year
  Sex: Male

DRUGS (5)
  1. CEFTRIAXONE [Suspect]
     Route: 042
  2. METRONIDAZOLE [Suspect]
     Route: 065
  3. PHENYTOIN [Suspect]
     Indication: STATUS EPILEPTICUS
     Route: 065
  4. LEVOFLOXACIN [Concomitant]
     Route: 065
  5. VALPROIC ACID [Concomitant]
     Indication: STATUS EPILEPTICUS
     Route: 065

REACTIONS (7)
  - DRUG RASH WITH EOSINOPHILIA AND SYSTEMIC SYMPTOMS [None]
  - EOSINOPHILIA [None]
  - HEPATIC ENZYME INCREASED [None]
  - LYMPHADENOPATHY [None]
  - PRURITUS [None]
  - PYREXIA [None]
  - RASH ERYTHEMATOUS [None]
